FAERS Safety Report 11584704 (Version 6)
Quarter: 2016Q1

REPORT INFORMATION
  Report Type: Spontaneous
  Country: US (occurrence: US)
  Receive Date: 20151001
  Receipt Date: 20160216
  Transmission Date: 20160525
  Serious: Yes (Death)
  Sender: FDA-Public Use
  Company Number: US-PFIZER INC-2015315612

PATIENT
  Age: 74 Year
  Sex: Male

DRUGS (16)
  1. VITAMIN D3 [Concomitant]
     Active Substance: CHOLECALCIFEROL
     Dosage: 400 IU, DAILY
     Route: 048
  2. ENSURE [Concomitant]
     Active Substance: AMINO ACIDS\DEXTROSE\ELECTROLYTES NOS\SOYBEAN OIL\VITAMINS
     Dosage: 1 DF, 3X/DAY
     Route: 048
  3. METOPROLOL TARTRATE. [Concomitant]
     Active Substance: METOPROLOL TARTRATE
     Dosage: 12.5 MG, 2X/DAY
     Route: 048
  4. SENEXON-S [Concomitant]
     Active Substance: DOCUSATE SODIUM\SENNOSIDES A AND B
     Dosage: 8.6 MG-50 MG, 2X/DAY
     Route: 048
  5. OXYCODONE-ACETAMINOPHEN [Concomitant]
     Active Substance: ACETAMINOPHEN\OXYCODONE HYDROCHLORIDE
     Dosage: OXYCODONE 5 MG/ACETAMINOPHEN 325 MG, 1-2 TABLET EVERY 4-6 HOURS AS NEEDED
     Route: 048
  6. ASPIRIN. [Concomitant]
     Active Substance: ASPIRIN
     Dosage: LOW DOSE 81 MG, DAILY
     Route: 048
  7. DOXAZOSIN [Concomitant]
     Active Substance: DOXAZOSIN\DOXAZOSIN MESYLATE
     Dosage: 4 MG, DAILY
     Route: 048
  8. MIRALAX [Concomitant]
     Active Substance: POLYETHYLENE GLYCOL 3350
     Dosage: 17 GRAM/DOSE, DAILY
     Route: 048
  9. MORPHINE [Concomitant]
     Active Substance: MORPHINE
     Dosage: 15 MG, 2X/DAY
     Route: 048
  10. SUTENT [Suspect]
     Active Substance: SUNITINIB MALATE
     Indication: RENAL CELL CARCINOMA STAGE IV
     Dosage: 50 MG, DAILY
     Route: 048
     Dates: start: 20150416, end: 20150802
  11. ACETAMINOPHEN. [Concomitant]
     Active Substance: ACETAMINOPHEN
     Dosage: UNK
  12. ZINC GLUCONATE [Concomitant]
     Active Substance: ZINC GLUCONATE
     Dosage: 50 MG, DAILY
     Route: 048
  13. ACETAMINOPHEN. [Concomitant]
     Active Substance: ACETAMINOPHEN
     Dosage: 650 MG (2 TABLETS OF 325 MG), AS DIRECTED
     Route: 048
  14. PANTOPRAZOLE [Concomitant]
     Active Substance: PANTOPRAZOLE SODIUM
     Dosage: 40 MG, DAILY
     Route: 048
  15. OXYCODONE-ACETAMINOPHEN [Concomitant]
     Active Substance: ACETAMINOPHEN\OXYCODONE HYDROCHLORIDE
     Dosage: (5 MG-325 MG TABLET) (TAKE 1-2 BY MOUTH EVERY 4-6 HOURS TAKE 1-2 EVERY 4 TO 6 HOURS BY MOUTH PRN.)
     Route: 048
  16. FUROSEMIDE. [Concomitant]
     Active Substance: FUROSEMIDE
     Dosage: 20 MG, DAILY
     Route: 048

REACTIONS (11)
  - Musculoskeletal stiffness [Unknown]
  - Peripheral swelling [Unknown]
  - Anaemia [Unknown]
  - Renal cell carcinoma stage IV [Fatal]
  - Dyspepsia [Unknown]
  - Disease progression [Fatal]
  - Diarrhoea [Unknown]
  - Asthenia [Unknown]
  - Dyspnoea [Unknown]
  - Nausea [Unknown]
  - Dizziness [Unknown]

NARRATIVE: CASE EVENT DATE: 20150513
